FAERS Safety Report 6972499-8 (Version None)
Quarter: 2010Q3

REPORT INFORMATION
  Report Type: 
  Country: None (occurrence: None)
  Receive Date: 20100824
  Receipt Date: 20100429
  Transmission Date: 20110219
  Serious: No
  Sender: FDA-Public Use
  Company Number: 307882

PATIENT
  Sex: Female

DRUGS (3)
  1. VICTOZA [Suspect]
     Indication: TYPE 2 DIABETES MELLITUS
     Dosage: 0.6 MG, QD, SUBCUTANEOUS ; 1.2 U, QD, SUBCUTANEOUS ;  1.8 U, QD, SUBCUTANEOUS
     Route: 058
     Dates: end: 20100414
  2. VICTOZA [Suspect]
     Indication: TYPE 2 DIABETES MELLITUS
     Dosage: 0.6 MG, QD, SUBCUTANEOUS ; 1.2 U, QD, SUBCUTANEOUS ;  1.8 U, QD, SUBCUTANEOUS
     Route: 058
     Dates: start: 20100401
  3. VICTOZA [Suspect]
     Indication: TYPE 2 DIABETES MELLITUS
     Dosage: 0.6 MG, QD, SUBCUTANEOUS ; 1.2 U, QD, SUBCUTANEOUS ;  1.8 U, QD, SUBCUTANEOUS
     Route: 058
     Dates: start: 20100415

REACTIONS (1)
  - SKIN EXFOLIATION [None]
